FAERS Safety Report 4651225-1 (Version None)
Quarter: 2005Q2

REPORT INFORMATION
  Report Type: 
  Country: None (occurrence: None)
  Receive Date: 20050503
  Receipt Date: 20050429
  Transmission Date: 20051028
  Serious: Yes (Death, Other)
  Sender: FDA-Public Use
  Company Number: PHBS2005CH06171

PATIENT
  Age: 74 Year
  Sex: Female

DRUGS (8)
  1. AREDIA [Suspect]
     Indication: MULTIPLE MYELOMA
     Dosage: 90 MG, QMO
     Dates: start: 19990101, end: 20030401
  2. ZOMETA [Suspect]
     Indication: MULTIPLE MYELOMA
     Dosage: 4 MG, QMO
     Dates: start: 20030527, end: 20050201
  3. METOPROLOL SUCCINATE [Concomitant]
     Dosage: 100 MG/D
     Route: 048
     Dates: start: 20030321
  4. OEDEMEX [Concomitant]
     Dosage: 80 MG/D
     Route: 048
     Dates: start: 20040401
  5. ALDOZONE [Concomitant]
     Dosage: 5+50 MG/DAY
     Route: 048
     Dates: start: 20050201
  6. NEO-MERCAZOLE TAB [Concomitant]
     Dosage: 15 MG/D
     Route: 048
     Dates: start: 20040601
  7. COZAAR [Concomitant]
     Dosage: 50 MG/D
     Route: 048
     Dates: start: 20050301
  8. MARCOUMAR [Concomitant]
     Dosage: UNK, PRN
     Dates: start: 20050301

REACTIONS (8)
  - ASEPTIC NECROSIS BONE [None]
  - CARDIAC AMYLOIDOSIS [None]
  - DENTAL TREATMENT [None]
  - JAW DISORDER [None]
  - MALIGNANT NEOPLASM PROGRESSION [None]
  - PRIMARY SEQUESTRUM [None]
  - PURULENT DISCHARGE [None]
  - WOUND DEBRIDEMENT [None]
